FAERS Safety Report 10082844 (Version 1)
Quarter: 2014Q2

REPORT INFORMATION
  Report Type: Report from Study
  Country: US (occurrence: US)
  Receive Date: 20140416
  Receipt Date: 20140416
  Transmission Date: 20141212
  Serious: Yes (Other)
  Sender: FDA-Public Use
  Company Number: PHEH2014US007385

PATIENT
  Sex: Female

DRUGS (3)
  1. TEGRETOL [Suspect]
     Indication: CONVULSION
     Dosage: UNK
     Route: 048
     Dates: start: 2005
  2. TRILEPTAL [Suspect]
     Indication: CONVULSION
     Dosage: UNK
     Route: 048
  3. TRILEPTAL [Suspect]
     Dosage: UNK

REACTIONS (4)
  - Brain injury [Unknown]
  - Feeling abnormal [Unknown]
  - Convulsion [Recovered/Resolved]
  - Drug ineffective [Unknown]
